FAERS Safety Report 5400149-0 (Version None)
Quarter: 2007Q3

REPORT INFORMATION
  Report Type: 
  Country: None (occurrence: None)
  Receive Date: 20070730
  Receipt Date: 20070724
  Transmission Date: 20080115
  Serious: Yes (Hospitalization, Other)
  Sender: FDA-Public Use
  Company Number: DE-BAYER-200710687BVD

PATIENT
  Age: 72 Year
  Sex: Male
  Weight: 34 kg

DRUGS (12)
  1. SORAFENIB [Suspect]
     Indication: HEPATIC CANCER METASTATIC
     Route: 048
     Dates: start: 20050214, end: 20070328
  2. SORAFENIB [Suspect]
     Dates: start: 20070328
  3. PANTOPRAZOLE SODIUM [Concomitant]
     Indication: DYSPEPSIA
     Dates: start: 20050101
  4. PRAVASTATIN [Concomitant]
     Indication: HYPERLIPIDAEMIA
     Dates: start: 20050101
  5. FUROSEMIDE [Concomitant]
     Indication: OEDEMA
     Dates: start: 20050101, end: 20070501
  6. METOPROLOL SUCCINATE [Concomitant]
     Indication: CORONARY ARTERY DISEASE
     Dates: start: 20050101, end: 20070501
  7. ASPIRIN [Concomitant]
     Indication: CORONARY ARTERY DISEASE
     Dates: start: 20010101
  8. DIOVAN [Concomitant]
     Indication: HYPERTENSION
  9. ALLOPURINOL [Concomitant]
     Indication: GOUT
     Dates: start: 20040701
  10. TORSEMIDE [Concomitant]
     Dates: end: 20070401
  11. SIMVASTATIN [Concomitant]
     Route: 048
     Dates: start: 20060101
  12. LOCOL [Concomitant]
     Route: 048
     Dates: start: 20070501

REACTIONS (10)
  - AORTIC STENOSIS [None]
  - DEHYDRATION [None]
  - DIARRHOEA [None]
  - FALL [None]
  - HEPATIC NEOPLASM MALIGNANT [None]
  - HYPOKALAEMIA [None]
  - HYPOTENSION [None]
  - JOINT DISLOCATION [None]
  - MALIGNANT NEOPLASM PROGRESSION [None]
  - SYNCOPE [None]
